FAERS Safety Report 18078015 (Version 1)
Quarter: 2020Q3

REPORT INFORMATION
  Report Type: Spontaneous
  Country: US (occurrence: US)
  Receive Date: 20200727
  Receipt Date: 20200727
  Transmission Date: 20201103
  Serious: No
  Sender: FDA-Public Use
  Company Number: US-SEATTLE GENETICS-2020SGN02786

PATIENT
  Sex: Female

DRUGS (4)
  1. CAPECITABINE. [Concomitant]
     Active Substance: CAPECITABINE
     Dosage: 150 MG
  2. TUKYSA [Suspect]
     Active Substance: TUCATINIB
     Indication: BREAST CANCER METASTATIC
     Dosage: UNK
     Dates: start: 20200618
  3. HERCEPTIN [Suspect]
     Active Substance: TRASTUZUMAB
     Indication: BREAST CANCER METASTATIC
  4. CAPECITABINE. [Concomitant]
     Active Substance: CAPECITABINE
     Dosage: 500 UNK

REACTIONS (2)
  - Liver function test increased [Unknown]
  - Ascites [Unknown]

NARRATIVE: CASE EVENT DATE: 20200619
